FAERS Safety Report 24354280 (Version 1)
Quarter: 2024Q3

REPORT INFORMATION
  Report Type: Spontaneous
  Country: US (occurrence: US)
  Receive Date: 20240923
  Receipt Date: 20240923
  Transmission Date: 20241016
  Serious: No
  Sender: NOVARTIS
  Company Number: US-002147023-NVSC2024US189256

PATIENT

DRUGS (1)
  1. LEQVIO [Suspect]
     Active Substance: INCLISIRAN SODIUM
     Indication: Low density lipoprotein
     Dosage: UNK (284MG/1.5 ML) (1 DOSE ON DAY ONE, 1 DOSE AT THE 3 MONTH MARK, EVERY 6 MONTHS FROM THERE)
     Route: 058

REACTIONS (1)
  - Drug ineffective [Not Recovered/Not Resolved]
